FAERS Safety Report 4686508-2 (Version None)
Quarter: 2005Q2

REPORT INFORMATION
  Report Type: 
  Country: None (occurrence: None)
  Receive Date: 20050609
  Receipt Date: 20050531
  Transmission Date: 20051028
  Serious: Yes (Hospitalization, Other)
  Sender: FDA-Public Use
  Company Number: PHBS2005JP07640

PATIENT
  Age: 44 Year
  Sex: Male

DRUGS (8)
  1. AMARYL [Suspect]
     Indication: DIABETES MELLITUS
     Dosage: 3 DF, QD
     Route: 048
  2. STARSIS [Suspect]
     Indication: DIABETES MELLITUS
     Dosage: UNK, TID
     Route: 048
     Dates: start: 20050511, end: 20050518
  3. FLOMAX [Concomitant]
     Indication: CELLULITIS
     Dosage: UNK, TID
     Dates: start: 20050429, end: 20050501
  4. LOXONIN [Concomitant]
     Indication: CELLULITIS
     Dosage: UNK, TID
     Dates: start: 20050429, end: 20050501
  5. PANSPORIN [Concomitant]
     Indication: CELLULITIS
     Dosage: 1 G, UNK
     Dates: start: 20050502, end: 20050509
  6. CRAVIT [Concomitant]
     Indication: CELLULITIS
     Dosage: UNK, TID
     Dates: start: 20050511, end: 20050514
  7. GENTACIN [Concomitant]
     Indication: CELLULITIS
     Dosage: 1 G, UNK
     Dates: start: 20050514, end: 20050515
  8. GENTACIN [Concomitant]
     Dosage: 1 G, UNK
     Dates: start: 20050519, end: 20050521

REACTIONS (6)
  - ABDOMINAL DISCOMFORT [None]
  - CARDIAC FAILURE [None]
  - CELLULITIS [None]
  - CHEST PAIN [None]
  - DYSPNOEA [None]
  - PLEURAL EFFUSION [None]
